FAERS Safety Report 13337019 (Version 2)
Quarter: 2017Q1

REPORT INFORMATION
  Report Type: Report from Study
  Country: US (occurrence: US)
  Receive Date: 20170314
  Receipt Date: 20170324
  Transmission Date: 20170428
  Serious: Yes (Other)
  Sender: FDA-Public Use
  Company Number: US-JAZZ-2017-US-003223

PATIENT
  Sex: Female

DRUGS (5)
  1. 5-HTP                              /00439301/ [Suspect]
     Active Substance: OXITRIPTAN
     Indication: PRODUCT USED FOR UNKNOWN INDICATION
  2. XYREM [Suspect]
     Active Substance: SODIUM OXYBATE
     Indication: CATAPLEXY
  3. MELATONIN [Suspect]
     Active Substance: MELATONIN
     Indication: PRODUCT USED FOR UNKNOWN INDICATION
  4. IRON [Suspect]
     Active Substance: IRON
     Indication: ANAEMIA
     Dosage: UNK
  5. XYREM [Suspect]
     Active Substance: SODIUM OXYBATE
     Indication: NARCOLEPSY
     Dosage: 2.25 G, BID
     Route: 048
     Dates: start: 200405, end: 20040715

REACTIONS (11)
  - Toothache [Unknown]
  - Unevaluable event [Unknown]
  - Adjustment disorder with depressed mood [Recovered/Resolved]
  - Nausea [Unknown]
  - Hunger [Unknown]
  - Incontinence [Recovered/Resolved]
  - Hysterectomy [Unknown]
  - Food allergy [Unknown]
  - Malaise [Unknown]
  - Nightmare [Unknown]
  - Enuresis [Recovered/Resolved]
